FAERS Safety Report 10044575 (Version 1)
Quarter: 2014Q1

REPORT INFORMATION
  Report Type: Spontaneous
  Country: US (occurrence: US)
  Receive Date: 20140328
  Receipt Date: 20140328
  Transmission Date: 20141002
  Serious: Yes (Other)
  Sender: FDA-Public Use
  Company Number: US-BAYER-2014-043639

PATIENT
  Age: 85 Year
  Sex: Male

DRUGS (2)
  1. ACETYLSALICYLIC ACID({=100 MG) [Suspect]
     Indication: ANTIPLATELET THERAPY
  2. CLOPIDOGREL [Suspect]
     Indication: ANTIPLATELET THERAPY

REACTIONS (4)
  - Thrombocytopenia [Recovering/Resolving]
  - Haemoptysis [Recovering/Resolving]
  - Disseminated intravascular coagulation [None]
  - Labelled drug-drug interaction medication error [None]
